FAERS Safety Report 15326997 (Version 1)
Quarter: 2018Q3

REPORT INFORMATION
  Report Type: Spontaneous
  Country: US (occurrence: US)
  Receive Date: 20180823
  Receipt Date: 20180823
  Transmission Date: 20181010
  Serious: Yes (Other)
  Sender: FDA-Public Use
  Company Number: None

PATIENT
  Age: 63 Year
  Sex: Male
  Weight: 83.25 kg

DRUGS (4)
  1. HYDROCHLOROTHIAZIDE 25MG TAB [Concomitant]
  2. SOFOSBUVIR [Suspect]
     Active Substance: SOFOSBUVIR
  3. RIBAVIRIN. [Suspect]
     Active Substance: RIBAVIRIN
  4. HEPATITIS A+B (720/20) VACCINE INJ [Concomitant]

REACTIONS (3)
  - Hepatitis C [None]
  - Hepatic lesion [None]
  - Hepatic mass [None]
